FAERS Safety Report 10069676 (Version 1)
Quarter: 2014Q2

REPORT INFORMATION
  Report Type: Report from Study
  Country: US (occurrence: US)
  Receive Date: 20140410
  Receipt Date: 20140410
  Transmission Date: 20141212
  Serious: Yes (Other)
  Sender: FDA-Public Use
  Company Number: US-ROCHE-1374889

PATIENT
  Sex: Male
  Weight: 57.4 kg

DRUGS (7)
  1. NUTROPIN AQ [Suspect]
     Indication: RENAL FAILURE CHRONIC
     Dosage: DAILY 7 DAYS WEEK
     Route: 058
     Dates: start: 2011
  2. NUTROPIN AQ [Suspect]
     Indication: FAILURE TO THRIVE
  3. NUTROPIN AQ [Suspect]
     Indication: BODY HEIGHT BELOW NORMAL
  4. CALCITRIOL [Concomitant]
     Route: 048
  5. PRINIVIL [Concomitant]
     Route: 048
  6. TENORMIN [Concomitant]
     Route: 048
  7. VITAMIN D2 [Concomitant]
     Route: 048

REACTIONS (5)
  - Headache [Unknown]
  - Vision blurred [Unknown]
  - Pollakiuria [Unknown]
  - Visual impairment [Unknown]
  - Contusion [Unknown]
